FAERS Safety Report 9681610 (Version 1)
Quarter: 2013Q4

REPORT INFORMATION
  Report Type: Spontaneous
  Country: US (occurrence: US)
  Receive Date: 20131111
  Receipt Date: 20131111
  Transmission Date: 20140711
  Serious: No
  Sender: FDA-Public Use
  Company Number: US-ENDO PHARMACEUTICALS INC.-PRIM20120005

PATIENT
  Sex: Male

DRUGS (4)
  1. PRIMIDONE TABLETS 50MG [Suspect]
     Indication: TREMOR
     Dosage: 50 MG
     Route: 048
  2. PRIMIDONE TABLETS 50MG [Suspect]
     Dosage: 50 MG
     Route: 048
  3. ALPRAZOLAM IR TABLETS [Suspect]
     Indication: TREMOR
     Dosage: UNKNOWN
     Route: 048
  4. PROPRANOLOL HCL TABLETS [Suspect]
     Indication: TREMOR
     Dosage: UNKNOWN
     Route: 048

REACTIONS (1)
  - Drug ineffective for unapproved indication [Not Recovered/Not Resolved]
